FAERS Safety Report 9302195 (Version 2)
Quarter: 2013Q3

REPORT INFORMATION
  Report Type: Spontaneous
  Country: US (occurrence: US)
  Receive Date: 20130522
  Receipt Date: 20130703
  Transmission Date: 20140515
  Serious: No
  Sender: FDA-Public Use
  Company Number: US-009507513-1305USA010862

PATIENT
  Sex: Female
  Weight: 54.88 kg

DRUGS (5)
  1. IMPLANON [Suspect]
     Indication: CONTRACEPTION
     Dosage: 1 DF, UNK
     Route: 059
     Dates: start: 20120917
  2. SERTRALINE HYDROCHLORIDE [Concomitant]
  3. ZOLPIDEM TARTRATE [Concomitant]
  4. DICLOFENAC [Concomitant]
  5. ALBUTEROL [Concomitant]

REACTIONS (3)
  - Menstruation irregular [Unknown]
  - Menorrhagia [Unknown]
  - Menstrual disorder [Unknown]
